FAERS Safety Report 8264958-5 (Version None)
Quarter: 2012Q2

REPORT INFORMATION
  Report Type: 
  Country: None (occurrence: None)
  Receive Date: 20120406
  Receipt Date: 20120327
  Transmission Date: 20120825
  Serious: Yes (Hospitalization, Other)
  Sender: FDA-Public Use
  Company Number: GB-TEVA-327451ISR

PATIENT
  Sex: Male
  Weight: 68 kg

DRUGS (1)
  1. COPAXONE [Suspect]
     Indication: RELAPSING-REMITTING MULTIPLE SCLEROSIS
     Dosage: 20 MILLIGRAM;
     Route: 058

REACTIONS (5)
  - COORDINATION ABNORMAL [None]
  - FALL [None]
  - DYSARTHRIA [None]
  - HYPOAESTHESIA [None]
  - CEREBRAL INFARCTION [None]
